FAERS Safety Report 20207630 (Version 2)
Quarter: 2022Q1

REPORT INFORMATION
  Report Type: Report from Study
  Country: US (occurrence: US)
  Receive Date: 20211220
  Receipt Date: 20220121
  Transmission Date: 20220423
  Serious: Yes (Hospitalization, Other)
  Sender: FDA-Public Use
  Company Number: US-PFIZER INC-202100950694

PATIENT
  Age: 58 Year
  Sex: Female

DRUGS (5)
  1. IBRANCE [Suspect]
     Active Substance: PALBOCICLIB
     Indication: Breast cancer female
     Dosage: 125 MG, ONCE DAILY FOR 21 DAYS ON/ 7 DAYS OFF)
     Route: 048
     Dates: start: 20210623, end: 20211007
  2. IBRANCE [Suspect]
     Active Substance: PALBOCICLIB
     Dosage: 125 MG, ONCE DAILY FOR 21 DAYS ON/ 7 DAYS OFF
     Route: 048
     Dates: start: 20211020, end: 20211115
  3. IBRANCE [Suspect]
     Active Substance: PALBOCICLIB
     Dosage: 125 MG, 21 DAYS ON/ 7 DAYS OFF (MONDAY THROUGH FRIDAY/ SATURDAY AND SUNDAY OFF)
     Route: 048
     Dates: start: 20211129, end: 20220101
  4. IBRANCE [Suspect]
     Active Substance: PALBOCICLIB
     Dosage: 100 MG (100 MG ONCE DAILY FOR 21 DAYS ON/ 7 DAYS OFF)
     Route: 048
     Dates: start: 20220109
  5. LETROZOLE [Concomitant]
     Active Substance: LETROZOLE
     Dosage: UNK, DAILY

REACTIONS (37)
  - Oesophageal ulcer [Unknown]
  - Haematemesis [Unknown]
  - Neutrophil count decreased [Unknown]
  - Haemorrhagic diathesis [Recovered/Resolved]
  - Headache [Recovered/Resolved]
  - Fatigue [Not Recovered/Not Resolved]
  - White blood cell count decreased [Not Recovered/Not Resolved]
  - Red blood cell count decreased [Not Recovered/Not Resolved]
  - Nausea [Recovered/Resolved]
  - Alopecia [Not Recovered/Not Resolved]
  - Platelet count decreased [Not Recovered/Not Resolved]
  - Decreased appetite [Recovered/Resolved]
  - Eczema [Recovering/Resolving]
  - Pruritus [Recovering/Resolving]
  - Pharyngeal swelling [Recovered/Resolved]
  - Oropharyngeal pain [Recovered/Resolved]
  - Acne [Not Recovered/Not Resolved]
  - Increased tendency to bruise [Recovered/Resolved]
  - Hyperaesthesia [Not Recovered/Not Resolved]
  - Mean platelet volume increased [Unknown]
  - Haemoglobin decreased [Unknown]
  - Anxiety [Unknown]
  - Chest discomfort [Unknown]
  - Hiatus hernia [Unknown]
  - Hypotension [Recovered/Resolved]
  - Arthralgia [Unknown]
  - Arthritis [Unknown]
  - Dyspepsia [Not Recovered/Not Resolved]
  - Back pain [Recovering/Resolving]
  - Productive cough [Recovering/Resolving]
  - Pyrexia [Recovering/Resolving]
  - Night sweats [Recovering/Resolving]
  - COVID-19 [Unknown]
  - Depression [Recovering/Resolving]
  - Product dose omission in error [Unknown]
  - Product use issue [Unknown]
  - Off label use [Unknown]

NARRATIVE: CASE EVENT DATE: 20210101
